FAERS Safety Report 5323505-8 (Version None)
Quarter: 2007Q2

REPORT INFORMATION
  Report Type: 
  Country: None (occurrence: None)
  Receive Date: 20070514
  Receipt Date: 20070507
  Transmission Date: 20071010
  Serious: Yes (Other)
  Sender: FDA-Public Use
  Company Number: PHEH2007US06771

PATIENT
  Age: 48 Year
  Sex: Female
  Weight: 80.997 kg

DRUGS (6)
  1. ZELNORM [Suspect]
     Indication: IRRITABLE BOWEL SYNDROME
     Dosage: 6 MG, BID
     Route: 048
     Dates: start: 20021101, end: 20070301
  2. ACETYLSALICYLIC ACID SRT [Concomitant]
     Dosage: 81 MG, QD
     Route: 048
  3. ZOLOFT [Concomitant]
     Dosage: 50 MG, QD
     Route: 048
  4. CRESTOR [Concomitant]
     Dosage: 5 MG, QD
     Route: 048
  5. MOBIC [Concomitant]
     Dosage: 7.5 MG, QD
     Route: 048
  6. RHINOCORT [Concomitant]
     Indication: HYPERSENSITIVITY
     Dosage: UNK, PRN

REACTIONS (10)
  - ABDOMINAL PAIN LOWER [None]
  - ANOGENITAL WARTS [None]
  - BIOPSY RECTUM ABNORMAL [None]
  - BOWEL SOUNDS ABNORMAL [None]
  - CONSTIPATION [None]
  - HYPERTENSION [None]
  - HYPERTRIGLYCERIDAEMIA [None]
  - LOW DENSITY LIPOPROTEIN INCREASED [None]
  - SLEEP APNOEA SYNDROME [None]
  - VARICOSE VEIN OPERATION [None]
